FAERS Safety Report 4446326-7 (Version None)
Quarter: 2004Q3

REPORT INFORMATION
  Report Type: 
  Country: None (occurrence: None)
  Receive Date: 20040907
  Receipt Date: 20040130
  Transmission Date: 20050211
  Serious: Yes (Other)
  Sender: FDA-Public Use
  Company Number: US-JNJFOC-20040604590

PATIENT
  Age: 68 Year
  Sex: Female

DRUGS (16)
  1. ACETAMINOPHEN [Suspect]
     Indication: HEADACHE
     Dosage: 1300 MG, 1 IN 1 TOTAL, ORAL
     Route: 048
     Dates: start: 20030205, end: 20030205
  2. ESTRADIOL [Concomitant]
  3. VIOXX [Concomitant]
  4. ZOCOR [Concomitant]
  5. COZAAR [Concomitant]
  6. CLARITIN [Concomitant]
  7. ULTRAM [Concomitant]
  8. SKELAXIN [Concomitant]
  9. DARVOCET [Concomitant]
  10. HUMIBID (GUAIFENESIN) [Concomitant]
  11. TRAZODONE HCL [Concomitant]
  12. SYNTHROID [Concomitant]
  13. UNSPECIFIED ASPIRIN PRODUCT (ACETYLSALICYLIC ACID) [Concomitant]
  14. FLONASE [Concomitant]
  15. UNSPECIFIED ANTIBIOTICS (ANTIBIOTICS) [Concomitant]
  16. VALIUM [Concomitant]

REACTIONS (7)
  - ASTHENIA [None]
  - DIZZINESS [None]
  - DYSPEPSIA [None]
  - DYSPNOEA [None]
  - HEARING IMPAIRED [None]
  - NAUSEA [None]
  - VERTIGO [None]
